FAERS Safety Report 5462474-7 (Version None)
Quarter: 2007Q3

REPORT INFORMATION
  Report Type: 
  Country: None (occurrence: None)
  Receive Date: 20070816
  Receipt Date: 20070130
  Transmission Date: 20080115
  Serious: Yes (Other)
  Sender: FDA-Public Use
  Company Number: 2007008385

PATIENT
  Age: 36 Year
  Sex: Female
  Weight: 73.9 kg

DRUGS (2)
  1. SULFASALAZINE [Suspect]
     Indication: CROHN'S DISEASE
     Dosage: 3000 MG (1500 MG, 2 IN 1 D), ORAL
     Route: 048
     Dates: start: 19880101
  2. URSO 250 [Concomitant]

REACTIONS (1)
  - DEAFNESS [None]
